FAERS Safety Report 6413446-7 (Version None)
Quarter: 2009Q4

REPORT INFORMATION
  Report Type: 
  Country: None (occurrence: None)
  Receive Date: 20091020
  Receipt Date: 20091008
  Transmission Date: 20100525
  Serious: Yes (Hospitalization)
  Sender: FDA-Public Use
  Company Number: PAR_03219_2009

PATIENT
  Age: 32 Year
  Sex: Female

DRUGS (13)
  1. IBUPROFEN [Suspect]
     Indication: ARTHRALGIA
     Dosage: 400 MG 1X/6 HOURS
  2. IBUPROFEN [Suspect]
     Indication: BACK PAIN
     Dosage: 400 MG 1X/6 HOURS
  3. PARACETAMOL 1 G [Suspect]
     Indication: ARTHRALGIA
     Dosage: 1 G 1X/6 HOURS
  4. PARACETAMOL 1 G [Suspect]
     Indication: BACK PAIN
     Dosage: 1 G 1X/6 HOURS
  5. TRAMADOL HCL [Suspect]
     Indication: ARTHRALGIA
     Dosage: 100 MG 1X/6 HOURS
  6. TRAMADOL HCL [Suspect]
     Indication: BACK PAIN
     Dosage: 100 MG 1X/6 HOURS
  7. MORPHINE [Suspect]
     Indication: ARTHRALGIA
     Dosage: DF, 20 MG Q4H ORAL
     Route: 048
  8. TIGER BALM /00734101/ (NOT SPECIFIED) [Suspect]
     Indication: ARTHRALGIA
     Dosage: DF
  9. TIGER BALM /00734101/ (NOT SPECIFIED) [Suspect]
     Indication: BACK PAIN
     Dosage: DF
  10. DOTHIEPIN /00160401/ [Concomitant]
  11. HYDROXYUREA [Concomitant]
  12. PENICILLIN-V /00001801/ [Concomitant]
  13. FOLIC ACID [Concomitant]

REACTIONS (7)
  - CONDITION AGGRAVATED [None]
  - DRUG INEFFECTIVE [None]
  - HAEMOGLOBIN DECREASED [None]
  - PAIN [None]
  - PYREXIA [None]
  - RENAL IMPAIRMENT [None]
  - WEIGHT BEARING DIFFICULTY [None]
